FAERS Safety Report 6048044-0 (Version None)
Quarter: 2009Q1

REPORT INFORMATION
  Report Type: 
  Country: None (occurrence: None)
  Receive Date: 20090123
  Receipt Date: 20090112
  Transmission Date: 20090719
  Serious: Yes (Death, Life-Threatening, Other)
  Sender: FDA-Public Use
  Company Number: SE-PFIZER INC-2006153261

PATIENT

DRUGS (4)
  1. SOMATROPIN [Suspect]
     Indication: HYPOPITUITARISM
     Dosage: 0.2 MG, DAILY
     Dates: start: 20050906, end: 20060910
  2. LEVOTHYROXINE SODIUM [Concomitant]
     Dosage: 100 MG, 1X/DAY
     Route: 048
     Dates: start: 20050220
  3. HYDROCORTISON [Concomitant]
     Dosage: 20 MG, DAILY
     Route: 048
     Dates: start: 20050220
  4. TESTOSTERONE [Concomitant]
     Dates: start: 19910101

REACTIONS (1)
  - MALIGNANT MELANOMA [None]
